FAERS Safety Report 5168991-1 (Version None)
Quarter: 2006Q4

REPORT INFORMATION
  Report Type: 
  Country: None (occurrence: None)
  Receive Date: 20061211
  Receipt Date: 20061127
  Transmission Date: 20070319
  Serious: Yes (Hospitalization)
  Sender: FDA-Public Use
  Company Number: FR-AVENTIS-200614198FR

PATIENT
  Age: 60 Year
  Sex: Female

DRUGS (12)
  1. LASILIX                            /00032601/ [Suspect]
     Indication: DRUG USE FOR UNKNOWN INDICATION
     Route: 048
     Dates: end: 20061027
  2. CLAFORAN                           /00497602/ [Suspect]
     Route: 042
  3. DUPHALAC                           /00163401/ [Suspect]
     Indication: DRUG USE FOR UNKNOWN INDICATION
     Route: 048
     Dates: end: 20061023
  4. GENTAMICIN [Suspect]
     Indication: DRUG USE FOR UNKNOWN INDICATION
     Route: 030
     Dates: start: 20061012, end: 20061023
  5. SEROPRAM [Concomitant]
  6. LOVENOX [Concomitant]
  7. UMULINE                            /00646003/ [Concomitant]
  8. TARDYFERON                         /00023503/ [Concomitant]
  9. AVLOCARDYL [Concomitant]
  10. ALDACTONE [Concomitant]
     Dates: end: 20061027
  11. OMEPRAZOLE [Concomitant]
     Dates: end: 20061023
  12. DAFALGAN CODEINE [Concomitant]
     Dates: end: 20061023

REACTIONS (2)
  - HYPOKALAEMIA [None]
  - RENAL FAILURE ACUTE [None]
